FAERS Safety Report 22953453 (Version 3)
Quarter: 2023Q4

REPORT INFORMATION
  Report Type: Spontaneous
  Country: US (occurrence: US)
  Receive Date: 20230918
  Receipt Date: 20231229
  Transmission Date: 20240110
  Serious: No
  Sender: FDA-Public Use
  Company Number: US-Merck Healthcare KGaA-2023475020

PATIENT
  Age: 65 Year
  Sex: Female
  Weight: 76 kg

DRUGS (1)
  1. MAVENCLAD [Suspect]
     Active Substance: CLADRIBINE
     Indication: Multiple sclerosis
     Dosage: CYCLE ONE THERAPY
     Route: 048

REACTIONS (1)
  - Headache [Recovered/Resolved]
